FAERS Safety Report 5881583-1 (Version None)
Quarter: 2008Q3

REPORT INFORMATION
  Report Type: 
  Country: None (occurrence: None)
  Receive Date: 20080912
  Receipt Date: 20080725
  Transmission Date: 20090109
  Serious: No
  Sender: FDA-Public Use
  Company Number: US-ABBOTT-08P-163-0460767-00

PATIENT
  Sex: Female
  Weight: 62.198 kg

DRUGS (6)
  1. HUMIRA [Suspect]
     Indication: RHEUMATOID ARTHRITIS
     Dates: start: 20080609
  2. HUMIRA [Suspect]
     Indication: PSORIATIC ARTHROPATHY
  3. METHOTREXATE [Concomitant]
     Indication: RHEUMATOID ARTHRITIS
  4. LAMOTRIGINE [Concomitant]
     Indication: AFFECTIVE DISORDER
  5. FLUOXETINE [Concomitant]
     Indication: AFFECTIVE DISORDER
  6. ACID PILL [Concomitant]
     Indication: GASTROOESOPHAGEAL REFLUX PROPHYLAXIS

REACTIONS (5)
  - HYPERTENSION [None]
  - INCREASED TENDENCY TO BRUISE [None]
  - INJECTION SITE HAEMATOMA [None]
  - LOCALISED INFECTION [None]
  - SKIN LACERATION [None]
